FAERS Safety Report 23604536 (Version 1)
Quarter: 2024Q1

REPORT INFORMATION
  Report Type: Spontaneous
  Country: JP (occurrence: JP)
  Receive Date: 20240307
  Receipt Date: 20240307
  Transmission Date: 20240410
  Serious: Yes (Death, Other)
  Sender: FDA-Public Use
  Company Number: JP-BAXTER-2024BAX013752

PATIENT
  Sex: Male

DRUGS (3)
  1. EXTRANEAL [Suspect]
     Active Substance: CALCIUM CHLORIDE\ICODEXTRIN\MAGNESIUM CHLORIDE\SODIUM CHLORIDE\SODIUM LACTATE
     Dosage: 1 BAG OF 2 LITERS EVERY 3 DAYS
     Route: 033
     Dates: start: 20170911, end: 20230131
  2. REGUNEAL LCA [Suspect]
     Active Substance: CALCIUM CHLORIDE\DEXTROSE MONOHYDRATE\HYDROCHLORIC ACID\MAGNESIUM CHLORIDE\SODIUM BICARBONATE\SODIUM
     Dosage: 1 BAG OF 2 LITERS EVERY 3 DAYS
     Route: 033
     Dates: start: 20161027, end: 20230131
  3. REGUNEAL LCA [Suspect]
     Active Substance: CALCIUM CHLORIDE\DEXTROSE MONOHYDRATE\HYDROCHLORIC ACID\MAGNESIUM CHLORIDE\SODIUM BICARBONATE\SODIUM
     Dosage: 2 BAGS OF 2.5 LITERS EVERY 3 DAYS
     Route: 033
     Dates: start: 20161027, end: 20230131

REACTIONS (2)
  - Enteritis [Fatal]
  - Intestinal haemorrhage [Fatal]
